FAERS Safety Report 6700013-0 (Version None)
Quarter: 2010Q2

REPORT INFORMATION
  Report Type: 
  Country: None (occurrence: None)
  Receive Date: 20100428
  Receipt Date: 20100126
  Transmission Date: 20101027
  Serious: No
  Sender: FDA-Public Use
  Company Number: US-ABBOTT-10P-163-0622358-00

PATIENT
  Age: 53 Year
  Sex: Male

DRUGS (1)
  1. MAVIK [Suspect]
     Indication: DRUG USE FOR UNKNOWN INDICATION

REACTIONS (2)
  - DRUG INEFFECTIVE [None]
  - HYPERTENSION [None]
